FAERS Safety Report 23943225 (Version 2)
Quarter: 2024Q3

REPORT INFORMATION
  Report Type: Report from Study
  Country: US (occurrence: US)
  Receive Date: 20240605
  Receipt Date: 20240705
  Transmission Date: 20241016
  Serious: Yes (Hospitalization, Other)
  Sender: BAYER
  Company Number: US-BAYER-2024A060616

PATIENT
  Age: 64 Year
  Sex: Male
  Weight: 92.063 kg

DRUGS (24)
  1. ADEMPAS [Suspect]
     Active Substance: RIOCIGUAT
     Indication: Pulmonary arterial hypertension
     Dosage: UNK
     Dates: start: 20240102
  2. ADEMPAS [Suspect]
     Active Substance: RIOCIGUAT
     Indication: Pulmonary arterial hypertension
     Dosage: 1.5 MG, TID
     Route: 048
  3. ADEMPAS [Suspect]
     Active Substance: RIOCIGUAT
     Indication: Pulmonary arterial hypertension
     Dosage: 2 MG, TID
     Route: 048
  4. ADEMPAS [Suspect]
     Active Substance: RIOCIGUAT
     Indication: Pulmonary arterial hypertension
     Dosage: 2 MG, TID
     Route: 048
  5. DOCUSATE SODIUM [Concomitant]
     Active Substance: DOCUSATE SODIUM
  6. FAMOTIDINE [Concomitant]
     Active Substance: FAMOTIDINE
  7. DEXTROSE [Concomitant]
     Active Substance: DEXTROSE\DEXTROSE MONOHYDRATE
  8. METOPROLOL TARTRATE [Concomitant]
     Active Substance: METOPROLOL TARTRATE
  9. ENSURE CLEAR [Concomitant]
  10. CETERID [Concomitant]
  11. ACETAMINOPHEN\HYDROCODONE [Concomitant]
     Active Substance: ACETAMINOPHEN\HYDROCODONE
  12. PSYLLIUM HUSK [Concomitant]
     Active Substance: PSYLLIUM HUSK
  13. TAMSULOSIN HYDROCHLORIDE [Concomitant]
     Active Substance: TAMSULOSIN HYDROCHLORIDE
  14. FLUTICASONE PROPIONATE\SALMETEROL XINAFOATE [Concomitant]
     Active Substance: FLUTICASONE PROPIONATE\SALMETEROL XINAFOATE
  15. GABAPENTIN [Concomitant]
     Active Substance: GABAPENTIN
  16. FLUTICASONE PROPIONATE [Concomitant]
     Active Substance: FLUTICASONE PROPIONATE
  17. ENSURE COMPACT [Concomitant]
  18. LATANOPROST [Concomitant]
     Active Substance: LATANOPROST
  19. LISINOPRIL [Concomitant]
     Active Substance: LISINOPRIL
  20. TIOTROPIUM BROMIDE [Concomitant]
     Active Substance: TIOTROPIUM BROMIDE
  21. METFORMIN HYDROCHLORIDE [Concomitant]
     Active Substance: METFORMIN HYDROCHLORIDE
  22. FUROSEMIDE [Concomitant]
     Active Substance: FUROSEMIDE
  23. ESCITALOPRAM OXALATE [Concomitant]
     Active Substance: ESCITALOPRAM OXALATE
  24. LIDOCAINE [Concomitant]
     Active Substance: LIDOCAINE

REACTIONS (7)
  - Medical procedure [None]
  - Oesophageal obstruction [None]
  - Pneumonia [None]
  - Myocardial infarction [None]
  - Vomiting [None]
  - Dyspnoea [None]
  - Weight decreased [None]

NARRATIVE: CASE EVENT DATE: 20240415
